FAERS Safety Report 6899273-5 (Version None)
Quarter: 2010Q3

REPORT INFORMATION
  Report Type: 
  Country: None (occurrence: None)
  Receive Date: 20100802
  Receipt Date: 20080421
  Transmission Date: 20110219
  Serious: Yes (Hospitalization, Other)
  Sender: FDA-Public Use
  Company Number: US-PFIZER INC-2007045606

PATIENT
  Sex: Male
  Weight: 99.8 kg

DRUGS (10)
  1. LYRICA [Suspect]
     Indication: PARAESTHESIA
     Route: 048
  2. GLYBURIDE [Concomitant]
  3. GLUCOPHAGE [Concomitant]
  4. ATENOLOL [Concomitant]
  5. LISINOPRIL [Concomitant]
  6. ACETYLSALICYLIC ACID SRT [Concomitant]
  7. SIMVASTATIN [Concomitant]
  8. VYTORIN [Concomitant]
  9. GLUCOSAMINE [Concomitant]
  10. VITAMIN TAB [Suspect]

REACTIONS (4)
  - DRUG INEFFECTIVE [None]
  - FATIGUE [None]
  - SOMNOLENCE [None]
  - UMBILICAL HERNIA REPAIR [None]
